FAERS Safety Report 23688762 (Version 1)
Quarter: 2024Q1

REPORT INFORMATION
  Report Type: Spontaneous
  Country: CN (occurrence: None)
  Receive Date: 20240329
  Receipt Date: 20240329
  Transmission Date: 20240409
  Serious: Yes (Other)
  Sender: FDA-Public Use
  Company Number: 2024A043268

PATIENT
  Age: 40 Year
  Sex: Male

DRUGS (1)
  1. BREZTRI [Suspect]
     Active Substance: BUDESONIDE\FORMOTEROL\GLYCOPYRROLATE
     Indication: Chronic obstructive pulmonary disease
     Dosage: 160?G/7.2?G/4.8?G/ACTUATION, 120 ACTUATIONS/BOTTLE, 1 BOTTLE/BOX
     Route: 055

REACTIONS (6)
  - Malaise [Recovering/Resolving]
  - Condition aggravated [Unknown]
  - Cardiac disorder [Unknown]
  - Nasopharyngitis [Unknown]
  - Device delivery system issue [Unknown]
  - Drug dose omission by device [Unknown]
